FAERS Safety Report 16025880 (Version 2)
Quarter: 2019Q2

REPORT INFORMATION
  Report Type: Spontaneous
  Country: IT (occurrence: IT)
  Receive Date: 20190302
  Receipt Date: 20190404
  Transmission Date: 20190711
  Serious: Yes (Other)
  Sender: FDA-Public Use
  Company Number: IT-AUROBINDO-AUR-APL-2019-011570

PATIENT

DRUGS (2)
  1. GEMCITABINA HIKMA [Concomitant]
     Indication: OVARIAN CANCER METASTATIC
     Dosage: 1408 MILLIGRAM
     Route: 042
     Dates: start: 20180227, end: 20180227
  2. CARBOPLATIN AUROBINDO CONCENTRATE FOR SOLUTION FOR INFUSION [Suspect]
     Active Substance: CARBOPLATIN
     Indication: OVARIAN CANCER METASTATIC
     Dosage: 470 MILLIGRAM, CYCLICAL
     Route: 042
     Dates: start: 20180227, end: 20180227

REACTIONS (2)
  - Infusion related reaction [Recovered/Resolved]
  - Anaphylactic shock [Recovered/Resolved]

NARRATIVE: CASE EVENT DATE: 20180227
